FAERS Safety Report 20099336 (Version 1)
Quarter: 2021Q4

REPORT INFORMATION
  Report Type: Spontaneous
  Country: US (occurrence: None)
  Receive Date: 20211122
  Receipt Date: 20211122
  Transmission Date: 20220303
  Serious: Yes (Hospitalization, Other)
  Sender: FDA-Public Use
  Company Number: US-ROCHE-2959020

PATIENT
  Sex: Male

DRUGS (6)
  1. CLONAZEPAM [Suspect]
     Active Substance: CLONAZEPAM
     Indication: Product used for unknown indication
     Route: 065
  2. GOCOVRI [Suspect]
     Active Substance: AMANTADINE
     Indication: Dyskinesia
     Dosage: 1X/DAY AT BEDTIME
     Route: 048
     Dates: start: 20200403
  3. CARBIDOPA\LEVODOPA [Concomitant]
     Active Substance: CARBIDOPA\LEVODOPA
  4. LOSARTAN [Concomitant]
     Active Substance: LOSARTAN
  5. METFORMIN [Concomitant]
     Active Substance: METFORMIN HYDROCHLORIDE
  6. ROPINIROLE [Concomitant]
     Active Substance: ROPINIROLE

REACTIONS (6)
  - Memory impairment [Not Recovered/Not Resolved]
  - Memory impairment [Not Recovered/Not Resolved]
  - Confusional state [Not Recovered/Not Resolved]
  - Unresponsive to stimuli [Unknown]
  - Overdose [Unknown]
  - Hallucination, visual [Not Recovered/Not Resolved]
